FAERS Safety Report 20258508 (Version 2)
Quarter: 2022Q1

REPORT INFORMATION
  Report Type: Spontaneous
  Country: US (occurrence: US)
  Receive Date: 20211230
  Receipt Date: 20220112
  Transmission Date: 20220424
  Serious: Yes (Other)
  Sender: FDA-Public Use
  Company Number: US-TEVA-2021-US-1993068

PATIENT
  Age: 80 Year
  Sex: Male

DRUGS (11)
  1. HYDROXYDOXORUBICIN [Suspect]
     Active Substance: HYDROXYDOXORUBICIN
     Indication: Double hit lymphoma
     Dosage: AS A PART OF R-CHOP REGIMEN
     Route: 065
  2. HYDROXYDOXORUBICIN [Suspect]
     Active Substance: HYDROXYDOXORUBICIN
     Dosage: 10 MG/M2 DAILY; AS A PART OF R-EPOCH REGIMEN
     Route: 065
  3. VINCRISTINE [Suspect]
     Active Substance: VINCRISTINE
     Indication: Double hit lymphoma
     Dosage: AS A PART OF R-CHOP REGIMEN
     Route: 065
  4. VINCRISTINE [Suspect]
     Active Substance: VINCRISTINE
     Dosage: .4 MG/M2 DAILY; AS A PART OF R-EPOCH REGIMEN
     Route: 065
  5. PREDNISONE [Suspect]
     Active Substance: PREDNISONE
     Indication: Double hit lymphoma
     Dosage: AS A PART OF R-CHOP REGIMEN
     Route: 065
  6. PREDNISONE [Suspect]
     Active Substance: PREDNISONE
     Dosage: 60 MG/M2 DAILY; AS A PART OF R-EPOCH REGIMEN
     Route: 065
  7. ETOPOSIDE [Suspect]
     Active Substance: ETOPOSIDE
     Dosage: 50 MG/M2 DAILY; AS A PART OF R-EPOCH REGIMEN
     Route: 065
  8. RITUXIMAB [Suspect]
     Active Substance: RITUXIMAB
     Indication: Double hit lymphoma
     Dosage: AS A PART OF R-CHOP AND R-EPOCH REGIMEN
     Route: 065
  9. CYCLOPHOSPHAMIDE [Suspect]
     Active Substance: CYCLOPHOSPHAMIDE
     Indication: Double hit lymphoma
     Dosage: AS A PART OF R-CHOP AND R-EPOCH REGIMEN
     Route: 065
  10. METHOTREXATE [Concomitant]
     Active Substance: METHOTREXATE
     Indication: Prophylaxis
     Route: 037
  11. NEULASTA [Concomitant]
     Active Substance: PEGFILGRASTIM
     Indication: Prophylaxis
     Route: 058

REACTIONS (3)
  - Anaemia [Unknown]
  - Thrombocytopenia [Unknown]
  - Ejection fraction decreased [Unknown]
